FAERS Safety Report 6032605-9 (Version None)
Quarter: 2009Q1

REPORT INFORMATION
  Report Type: 
  Country: None (occurrence: None)
  Receive Date: 20090109
  Receipt Date: 20090105
  Transmission Date: 20090719
  Serious: Yes (Other)
  Sender: FDA-Public Use
  Company Number: PHEH2007US13872

PATIENT
  Sex: Female

DRUGS (4)
  1. AREDIA [Suspect]
     Indication: BREAST CANCER
  2. ZOMETA [Suspect]
     Indication: BREAST CANCER
  3. FASLODEX [Concomitant]
  4. ARANESP [Concomitant]

REACTIONS (14)
  - ANHEDONIA [None]
  - ANXIETY [None]
  - DEFORMITY [None]
  - DISCOMFORT [None]
  - EMOTIONAL DISTRESS [None]
  - INFECTION [None]
  - LIFE EXPECTANCY SHORTENED [None]
  - METASTASES TO BONE [None]
  - METASTASES TO CENTRAL NERVOUS SYSTEM [None]
  - OSTEONECROSIS [None]
  - OSTEOSCLEROSIS [None]
  - PAIN [None]
  - PLEURAL EFFUSION [None]
  - PLEURODESIS [None]
